FAERS Safety Report 13677132 (Version 1)
Quarter: 2017Q2

REPORT INFORMATION
  Report Type: Spontaneous
  Country: US (occurrence: US)
  Receive Date: 20170622
  Receipt Date: 20170622
  Transmission Date: 20170830
  Serious: No
  Sender: FDA-Public Use
  Company Number: US-MISSION PHARMACAL COMPANY-2022387

PATIENT
  Age: 22 Year
  Sex: Male

DRUGS (1)
  1. THIOLA [Suspect]
     Active Substance: TIOPRONIN
     Indication: CYSTINURIA
     Route: 065
     Dates: start: 20170527, end: 20170610

REACTIONS (6)
  - Oedema peripheral [Unknown]
  - Rash generalised [Unknown]
  - Urticaria [Unknown]
  - Pruritus [Unknown]
  - Drug dose omission [Unknown]
  - Face oedema [Unknown]
